FAERS Safety Report 5592771-6 (Version None)
Quarter: 2008Q1

REPORT INFORMATION
  Report Type: 
  Country: None (occurrence: None)
  Receive Date: 20080114
  Receipt Date: 20080108
  Transmission Date: 20080703
  Serious: Yes (Hospitalization)
  Sender: FDA-Public Use
  Company Number: 163-20785-07120590

PATIENT
  Age: 70 Year
  Sex: Male

DRUGS (3)
  1. THALOMID [Suspect]
     Indication: MULTIPLE MYELOMA
     Dosage: 100 MG, QD, ORAL; 200 MG, QD, ORAL
     Route: 048
     Dates: start: 20031106
  2. THALOMID [Suspect]
     Indication: MULTIPLE MYELOMA
     Dosage: 100 MG, QD, ORAL; 200 MG, QD, ORAL
     Route: 048
     Dates: start: 20071116
  3. PREDNISONE TAB [Suspect]
     Indication: MULTIPLE MYELOMA

REACTIONS (5)
  - DIALYSIS [None]
  - DRUG DOSE OMISSION [None]
  - PULMONARY OEDEMA [None]
  - RENAL DISORDER [None]
  - TREATMENT NONCOMPLIANCE [None]
